FAERS Safety Report 4613836-9 (Version None)
Quarter: 2005Q1

REPORT INFORMATION
  Report Type: 
  Country: None (occurrence: None)
  Receive Date: 20050315
  Receipt Date: 20050304
  Transmission Date: 20050727
  Serious: Yes (Life-Threatening)
  Sender: FDA-Public Use
  Company Number: 05H-087-0293124-00

PATIENT
  Age: 62 Year
  Sex: Male
  Weight: 75 kg

DRUGS (6)
  1. PRECEDEX [Suspect]
     Indication: SEDATIVE THERAPY
     Dosage: 0.6 MCG/KG/HR, INTRAVENOUS
     Route: 042
     Dates: start: 20041219, end: 20041220
  2. SEVOFLURANE [Concomitant]
  3. ISOFLURANE [Concomitant]
  4. BUPRENORPHINE HCL [Concomitant]
  5. MIDAZOLAM HYDROCHLORIDE [Concomitant]
  6. FUROSEMIDE [Concomitant]

REACTIONS (6)
  - CIRRHOSIS ALCOHOLIC [None]
  - COAGULATION TEST ABNORMAL [None]
  - CONDITION AGGRAVATED [None]
  - HEPATIC FUNCTION ABNORMAL [None]
  - RENAL IMPAIRMENT [None]
  - SHOCK HAEMORRHAGIC [None]
